FAERS Safety Report 9764182 (Version 2)
Quarter: 2014Q1

REPORT INFORMATION
  Report Type: Spontaneous
  Country: BR (occurrence: BR)
  Receive Date: 20131216
  Receipt Date: 20140110
  Transmission Date: 20141002
  Serious: Yes (Death, Hospitalization, Other)
  Sender: FDA-Public Use
  Company Number: PHHY2013BR146941

PATIENT
  Age: 61 Year
  Sex: Female

DRUGS (1)
  1. FORASEQ [Suspect]
     Indication: BRONCHITIS
     Dosage: 1 DF, QD
     Route: 055
     Dates: start: 2010

REACTIONS (6)
  - Lung neoplasm malignant [Fatal]
  - Cardio-respiratory arrest [Fatal]
  - Pathological fracture [Not Recovered/Not Resolved]
  - Bone pain [Unknown]
  - Eating disorder [Recovering/Resolving]
  - Metastases to bone [Not Recovered/Not Resolved]
